FAERS Safety Report 6338172-4 (Version None)
Quarter: 2009Q3

REPORT INFORMATION
  Report Type: 
  Country: None (occurrence: None)
  Receive Date: 20090902
  Receipt Date: 20090826
  Transmission Date: 20100115
  Serious: Yes (Other)
  Sender: FDA-Public Use
  Company Number: ZA-ABBOTT-09P-143-0593695-00

PATIENT
  Sex: Female

DRUGS (2)
  1. EPILIM SYRUP [Suspect]
     Indication: EPILEPSY
     Route: 048
     Dates: start: 20041101, end: 20050401
  2. TRILEPTAL [Concomitant]
     Indication: CONVULSION
     Route: 048
     Dates: start: 20041101, end: 20080301

REACTIONS (2)
  - CONVULSION [None]
  - DRUG LEVEL BELOW THERAPEUTIC [None]
